FAERS Safety Report 15053186 (Version 1)
Quarter: 2018Q2

REPORT INFORMATION
  Report Type: Report from Study
  Country: US (occurrence: US)
  Receive Date: 20180622
  Receipt Date: 20180622
  Transmission Date: 20180711
  Serious: Yes (Death)
  Sender: FDA-Public Use
  Company Number: US-ACTELION-A-NJ2018-173983

PATIENT
  Age: 73 Year
  Sex: Female

DRUGS (10)
  1. GENERLAC [Concomitant]
     Active Substance: LACTULOSE
  2. SILDENAFIL. [Concomitant]
     Active Substance: SILDENAFIL
     Dosage: 20 MG, TID
     Dates: start: 20180203, end: 20180601
  3. TORSEMIDE. [Concomitant]
     Active Substance: TORSEMIDE
  4. PAROXETINE. [Concomitant]
     Active Substance: PAROXETINE
  5. GABAPENTIN. [Concomitant]
     Active Substance: GABAPENTIN
  6. BUPROPION. [Concomitant]
     Active Substance: BUPROPION
  7. DICYCLOMINE [Concomitant]
     Active Substance: DICYCLOMINE HYDROCHLORIDE
  8. OPSUMIT [Suspect]
     Active Substance: MACITENTAN
     Indication: PULMONARY ARTERIAL HYPERTENSION
     Dosage: 10 MG, QD
     Route: 048
     Dates: start: 20171230, end: 20180601
  9. SPIRONOLACTONE. [Concomitant]
     Active Substance: SPIRONOLACTONE
  10. OXYBUTYNIN. [Concomitant]
     Active Substance: OXYBUTYNIN CHLORIDE

REACTIONS (1)
  - Death [Fatal]

NARRATIVE: CASE EVENT DATE: 20180601
